FAERS Safety Report 5070160-0 (Version None)
Quarter: 2006Q3

REPORT INFORMATION
  Report Type: 
  Country: None (occurrence: None)
  Receive Date: 20060803
  Receipt Date: 20060724
  Transmission Date: 20061208
  Serious: Yes (Death)
  Sender: FDA-Public Use
  Company Number: GB-BRISTOL-MYERS SQUIBB COMPANY-13451950

PATIENT
  Age: 52 Year
  Sex: Male

DRUGS (1)
  1. ARIPIPRAZOLE [Suspect]
     Indication: PSYCHOTIC DISORDER
     Route: 048
     Dates: start: 20060501, end: 20060602

REACTIONS (1)
  - COMPLETED SUICIDE [None]
